FAERS Safety Report 24674290 (Version 2)
Quarter: 2024Q4

REPORT INFORMATION
  Report Type: Report from Study
  Country: US (occurrence: US)
  Receive Date: 20241128
  Receipt Date: 20241219
  Transmission Date: 20250115
  Serious: No
  Sender: JAZZ
  Company Number: US-JAZZ PHARMACEUTICALS-2024-US-022007

PATIENT
  Sex: Male

DRUGS (11)
  1. SODIUM OXYBATE [Suspect]
     Active Substance: SODIUM OXYBATE
     Indication: Hypersomnia
     Dosage: UNK
  2. ACETAMINOPHEN\OXYCODONE HYDROCHLORIDE\OXYCODONE TEREPHTHALATE [Suspect]
     Active Substance: ACETAMINOPHEN\OXYCODONE HYDROCHLORIDE\OXYCODONE TEREPHTHALATE
     Indication: Product used for unknown indication
  3. LEXAPRO [Concomitant]
     Active Substance: ESCITALOPRAM OXALATE
     Dosage: 0000
     Dates: start: 20190101
  4. OLMESARTAN MEDOXOMIL [Concomitant]
     Active Substance: OLMESARTAN MEDOXOMIL
     Dosage: 0000
     Dates: start: 20221121
  5. TRAMADOL HCL [Concomitant]
     Active Substance: TRAMADOL HYDROCHLORIDE
     Dosage: 0000
     Dates: start: 20170101
  6. LYRICA [Concomitant]
     Active Substance: PREGABALIN
     Dosage: 0000
     Dates: start: 20230601
  7. TRAZODONE [Concomitant]
     Active Substance: TRAZODONE HYDROCHLORIDE
     Dosage: 0000
     Dates: start: 20120101
  8. NEBIVOLOL [Concomitant]
     Active Substance: NEBIVOLOL
     Dosage: 0000
     Dates: start: 20180101
  9. DIAZEPAM [Concomitant]
     Active Substance: DIAZEPAM
     Dosage: 0000
     Dates: start: 20170101
  10. ZYRTEC [Concomitant]
     Active Substance: CETIRIZINE HYDROCHLORIDE
     Dosage: 0000
     Dates: start: 20120101
  11. PANTOPRAZOLE SODIUM [Concomitant]
     Active Substance: PANTOPRAZOLE SODIUM
     Dosage: 0000
     Dates: start: 20240601

REACTIONS (3)
  - Pruritus [Unknown]
  - Malaise [Unknown]
  - Off label use [Unknown]
